FAERS Safety Report 9928649 (Version 1)
Quarter: 2014Q1

REPORT INFORMATION
  Report Type: Spontaneous
  Country: US (occurrence: None)
  Receive Date: 20140225
  Receipt Date: 20140225
  Transmission Date: 20141002
  Serious: No
  Sender: FDA-Public Use
  Company Number: B0971088A

PATIENT
  Age: 31 Year
  Sex: Female

DRUGS (4)
  1. METHADONE HYDROCHLORIDE (GENERIC) [Suspect]
     Indication: DRUG WITHDRAWAL SYNDROME
     Route: 042
  2. OLANZAPINE (GENERIC) [Suspect]
     Indication: PRODUCT USED FOR UNKNOWN INDICATION
     Route: 048
  3. ONDANSETRON HYDROCHLORIDE (FORMULATION UNKNOWN) (ONDANSETRON HYDROCHLORIDE) [Suspect]
     Indication: NAUSEA
  4. HALOPERIDOL (FORMULATION UNKNOWN) (HALOPERIDOL) [Suspect]
     Indication: AGITATION

REACTIONS (11)
  - Torsade de pointes [None]
  - Delirium [None]
  - Pain [None]
  - Back pain [None]
  - Abdominal pain [None]
  - Drug withdrawal syndrome [None]
  - Unresponsive to stimuli [None]
  - Device malfunction [None]
  - Nodal rhythm [None]
  - Ventricular extrasystoles [None]
  - Tachycardia [None]
